FAERS Safety Report 8860522 (Version 1)
Quarter: 2012Q4

REPORT INFORMATION
  Report Type: 
  Country: US (occurrence: US)
  Receive Date: 20121025
  Receipt Date: 20121025
  Transmission Date: 20130627
  Serious: Yes (Other)
  Sender: FDA-Public Use
  Company Number: US-ABBOTT-12P-163-0995730-00

PATIENT
  Age: 64 Year
  Sex: Male
  Weight: 82.49 kg

DRUGS (3)
  1. ERYTHROMYCIN [Suspect]
     Indication: IMPAIRED GASTRIC EMPTYING
     Dosage: q 6 IV
     Route: 042
     Dates: start: 20120913, end: 20120914
  2. AXITINIB [Suspect]
     Indication: METASTATIC RENAL CELL CARCINOMA
     Route: 048
     Dates: start: 20120405, end: 20120914
  3. ANGIOPOIETIN [Suspect]
     Indication: METASTATIC RENAL CELL CARCINOMA

REACTIONS (3)
  - Convulsion [Unknown]
  - Impaired gastric emptying [None]
  - Cerebral atrophy [None]
